FAERS Safety Report 4798165-5 (Version None)
Quarter: 2005Q4

REPORT INFORMATION
  Report Type: 
  Country: None (occurrence: None)
  Receive Date: 20051011
  Receipt Date: 20051011
  Transmission Date: 20060501
  Serious: Yes (Hospitalization)
  Sender: FDA-Public Use
  Company Number: None

PATIENT
  Age: 51 Year
  Sex: Male
  Weight: 79.1 kg

DRUGS (3)
  1. TRAZODONE [Suspect]
     Indication: SCHIZOPHRENIA
     Dosage: 100MG, 100MG HS, ORAL
     Route: 048
     Dates: start: 20050523, end: 20050601
  2. TRAZODONE [Suspect]
     Indication: SLEEP DISORDER
     Dosage: 100MG, 100MG HS, ORAL
     Route: 048
     Dates: start: 20050523, end: 20050601
  3. OLANZAPINE [Concomitant]

REACTIONS (1)
  - PRIAPISM [None]
